FAERS Safety Report 22255514 (Version 2)
Quarter: 2024Q1

REPORT INFORMATION
  Report Type: Report from Study
  Country: BR (occurrence: BR)
  Receive Date: 20230426
  Receipt Date: 20240124
  Transmission Date: 20240410
  Serious: Yes (Life-Threatening, Hospitalization)
  Sender: FDA-Public Use
  Company Number: BR-TAKEDA-BR201941204

PATIENT
  Age: 14 Year
  Sex: Male
  Weight: 37 kg

DRUGS (17)
  1. HEMO-8R [Suspect]
     Active Substance: ANTIHEMOPHILIC FACTOR, HUMAN RECOMBINANT
     Indication: Factor VIII deficiency
     Dosage: UNK
     Route: 042
     Dates: start: 20160720
  2. HEMO-8R [Suspect]
     Active Substance: ANTIHEMOPHILIC FACTOR, HUMAN RECOMBINANT
     Indication: Prophylaxis
     Dosage: 750 INTERNATIONAL UNIT
     Route: 042
     Dates: start: 20190703
  3. METAMIZOLE [Concomitant]
     Active Substance: METAMIZOLE
     Indication: Headache
     Dosage: UNK UNK, QID
     Dates: start: 20170505, end: 20170506
  4. METAMIZOLE [Concomitant]
     Active Substance: METAMIZOLE
     Indication: Gastrointestinal pain
     Dosage: 1000 MILLIGRAM, QD
     Dates: start: 20180816, end: 20180816
  5. METAMIZOLE [Concomitant]
     Active Substance: METAMIZOLE
     Indication: Pyrexia
  6. Histamin [Concomitant]
     Indication: Hypersensitivity
     Dosage: 6 MILLILITER, TID
     Dates: start: 20170505
  7. NIMESULIDE [Concomitant]
     Active Substance: NIMESULIDE
     Indication: Groin pain
     Dosage: 100 MILLIGRAM, BID
     Dates: start: 20170602, end: 20170607
  8. METOCLOPRAMIDE HYDROCHLORIDE [Concomitant]
     Active Substance: METOCLOPRAMIDE HYDROCHLORIDE
     Indication: Motion sickness
     Dosage: 1 INTERNATIONAL UNIT, QD
     Dates: start: 20180816, end: 20180816
  9. METOCLOPRAMIDE HYDROCHLORIDE [Concomitant]
     Active Substance: METOCLOPRAMIDE HYDROCHLORIDE
     Indication: Nausea
  10. ALBENDAZOLE [Concomitant]
     Active Substance: ALBENDAZOLE
     Dosage: 400 MILLIGRAM, QD
     Dates: start: 20190926, end: 20190930
  11. BUTYLSCOPOLAMINE BROMIDE [Concomitant]
     Active Substance: BUTYLSCOPOLAMINE BROMIDE
     Indication: Abdominal pain
     Dosage: 20 MILLIGRAM, QD
     Dates: start: 20190610, end: 20190610
  12. METRONIDAZOLE [Concomitant]
     Active Substance: METRONIDAZOLE
     Indication: Abdominal pain
     Dosage: 500 MILLIGRAM, QD
     Dates: start: 20190720, end: 20190724
  13. NISOFLAN [Concomitant]
     Indication: Abdominal pain
     Dosage: 100 MILLIGRAM, BID
     Dates: start: 20190913, end: 20190914
  14. NITAZOXANIDE [Concomitant]
     Active Substance: NITAZOXANIDE
     Indication: Vomiting
     Dosage: 500 MILLIGRAM, BID
     Dates: start: 20190607, end: 20190610
  15. NITAZOXANIDE [Concomitant]
     Active Substance: NITAZOXANIDE
     Indication: Diarrhoea
  16. OMEPRAZOLE [Concomitant]
     Active Substance: OMEPRAZOLE
     Indication: Abdominal pain
     Dosage: 40 MILLIGRAM, QD
     Dates: start: 20190610, end: 20190610
  17. OMEPRAZOLE [Concomitant]
     Active Substance: OMEPRAZOLE
     Dosage: 40 MILLIGRAM, QD
     Dates: start: 20190614, end: 20190629

REACTIONS (1)
  - Amoebiasis [Recovered/Resolved]

NARRATIVE: CASE EVENT DATE: 20190704
